FAERS Safety Report 6662277-1 (Version None)
Quarter: 2010Q1

REPORT INFORMATION
  Report Type: 
  Country: None (occurrence: None)
  Receive Date: 20100331
  Receipt Date: 20100330
  Transmission Date: 20100710
  Serious: Yes (Other)
  Sender: FDA-Public Use
  Company Number: US-B.I. PHARMACEUTICALS,INC./RIDGEFIELD-2010-BP-03014BP

PATIENT
  Age: 79 Year
  Sex: Male

DRUGS (2)
  1. MICARDIS [Suspect]
     Indication: HYPERTENSION
     Dates: start: 20050106, end: 20100221
  2. LISINOPRIL [Suspect]
     Indication: HYPERTENSION
     Dates: start: 20100222

REACTIONS (1)
  - ANGIOEDEMA [None]
